FAERS Safety Report 5012989-0 (Version None)
Quarter: 2006Q2

REPORT INFORMATION
  Report Type: 
  Country: None (occurrence: None)
  Receive Date: 20060530
  Receipt Date: 20060419
  Transmission Date: 20061013
  Serious: Yes (Hospitalization)
  Sender: FDA-Public Use
  Company Number: 2006UW06877

PATIENT
  Age: 24034 Day
  Sex: Male
  Weight: 74.3 kg

DRUGS (25)
  1. NEXIUM [Suspect]
     Indication: GASTROOESOPHAGEAL REFLUX DISEASE
     Route: 048
     Dates: start: 20060221, end: 20060401
  2. NEXIUM [Suspect]
     Route: 048
     Dates: start: 20060403, end: 20060406
  3. PARLODEL [Concomitant]
     Indication: PROPHYLAXIS
  4. PROSCAR [Concomitant]
     Indication: BENIGN PROSTATIC HYPERPLASIA
  5. PRAVACHOL [Concomitant]
     Indication: BLOOD CHOLESTEROL INCREASED
  6. CORTEF [Concomitant]
     Indication: ADRENAL INSUFFICIENCY
  7. SYNTHROID [Concomitant]
     Indication: HYPOTHYROIDISM
  8. SYNTHROID [Concomitant]
     Indication: HYPOPITUITARISM
  9. AVAPRO [Concomitant]
     Indication: HYPERTENSION
  10. HYDROCHLOROTHIAZIDE [Concomitant]
     Indication: HYPERTENSION
  11. ANDROGEL [Concomitant]
     Dosage: 5 GM, 1%, 2/3 PACKET
  12. SODIUM CHLORIDE TOOTHPASTE [Concomitant]
     Indication: TOOTH DISORDER
     Dosage: 1.10 %
  13. VIAGRA [Concomitant]
  14. CLINORIL [Concomitant]
     Indication: PAIN
  15. IBUPROFEN [Concomitant]
     Indication: PAIN
  16. ASPIRIN [Concomitant]
  17. SELENIUM SULFIDE [Concomitant]
  18. ASCORBIC ACID [Concomitant]
  19. SAW PALMETTO [Concomitant]
  20. MULTIVITAMIN W/LYCOPENE AND LUTEIN [Concomitant]
  21. COQ10 [Concomitant]
  22. MAGNESIUM CITRATE [Concomitant]
  23. VITAMIN B6 [Concomitant]
  24. FOLIC ACID [Concomitant]
  25. FISH OIL [Concomitant]

REACTIONS (5)
  - ASTHMA [None]
  - HYPERSENSITIVITY [None]
  - RHINITIS ALLERGIC [None]
  - VIRAL INFECTION [None]
  - VIRAL UPPER RESPIRATORY TRACT INFECTION [None]
